FAERS Safety Report 11748633 (Version 1)
Quarter: 2015Q4

REPORT INFORMATION
  Report Type: Spontaneous
  Country: US (occurrence: US)
  Receive Date: 20151117
  Receipt Date: 20151117
  Transmission Date: 20160304
  Serious: Yes (Other)
  Sender: FDA-Public Use
  Company Number: US-MYLANLABS-2015M1038861

PATIENT

DRUGS (4)
  1. FENTANYL. [Suspect]
     Active Substance: FENTANYL
     Indication: HERPES ZOSTER
  2. FENTANYL TRANSDERMAL SYSTEM [Suspect]
     Active Substance: FENTANYL
     Indication: HERPES ZOSTER
  3. FENTANYL. [Suspect]
     Active Substance: FENTANYL
     Indication: BACK PAIN
     Dosage: 25 ?G, QH, CHANGE Q72H
     Route: 062
     Dates: end: 201510
  4. FENTANYL TRANSDERMAL SYSTEM [Suspect]
     Active Substance: FENTANYL
     Indication: BACK PAIN
     Dosage: 75 ?G, QH, CHANGE Q72H
     Route: 062
     Dates: start: 201510

REACTIONS (2)
  - Drug ineffective [Not Recovered/Not Resolved]
  - Constipation [Not Recovered/Not Resolved]
